FAERS Safety Report 13873094 (Version 2)
Quarter: 2017Q3

REPORT INFORMATION
  Report Type: Report from Study
  Country: US (occurrence: US)
  Receive Date: 20170816
  Receipt Date: 20170830
  Transmission Date: 20171127
  Serious: Yes (Hospitalization)
  Sender: FDA-Public Use
  Company Number: US-ASTELLAS-2017US032172

PATIENT
  Age: 75 Year
  Sex: Male

DRUGS (11)
  1. LIORESAL [Concomitant]
     Active Substance: BACLOFEN
     Indication: MUSCLE SPASMS
     Dosage: 5 MG, AS NEEDED, TWICE DAILY
     Route: 048
     Dates: start: 20170802
  2. HYDROMORPHONE HCL AND BUPIVACAINE HCL [Concomitant]
     Active Substance: BUPIVACAINE\HYDROMORPHONE
     Dosage: UNK UNK, AS DIRECTED
     Route: 037
     Dates: start: 20170802
  3. MIRALAX [Concomitant]
     Active Substance: POLYETHYLENE GLYCOL 3350
     Indication: PRODUCT USED FOR UNKNOWN INDICATION
     Dosage: 17 G, ONCE DAILY EVERY MORNING
     Route: 048
     Dates: start: 20170612
  4. HYDROMORPHONE HCL AND BUPIVACAINE HCL [Concomitant]
     Active Substance: BUPIVACAINE\HYDROMORPHONE
     Dosage: UNK UNK, AS DIRECTED
     Route: 037
     Dates: start: 20170710
  5. AMLODIPINE BES.W/HYDROCHLOROTHIAZID/VALSARTAN [Concomitant]
     Indication: PRODUCT USED FOR UNKNOWN INDICATION
     Route: 048
     Dates: start: 20170710
  6. CHRONULAC [Concomitant]
     Active Substance: LACTULOSE
     Indication: PRODUCT USED FOR UNKNOWN INDICATION
     Dosage: 30 G (45 ML), THRICE DAILY
     Route: 048
     Dates: start: 20170612
  7. HYDROMORPHONE HCL AND BUPIVACAINE HCL [Concomitant]
     Active Substance: BUPIVACAINE\HYDROMORPHONE
     Indication: PRODUCT USED FOR UNKNOWN INDICATION
     Dosage: UNK UNK, AS DIRECTED
     Route: 037
     Dates: start: 20170605
  8. ENZALUTAMIDE [Suspect]
     Active Substance: ENZALUTAMIDE
     Indication: PROSTATE CANCER
     Route: 048
     Dates: start: 20170622, end: 20170804
  9. METFORMIN [Suspect]
     Active Substance: METFORMIN HYDROCHLORIDE
     Indication: PROSTATE CANCER
     Route: 048
     Dates: start: 20170622, end: 20170804
  10. SENOKOT [Concomitant]
     Active Substance: SENNOSIDES
     Indication: PRODUCT USED FOR UNKNOWN INDICATION
     Dosage: 17.2 MG, AT BEDTIME
     Route: 048
     Dates: start: 20170612
  11. LIDODERM [Concomitant]
     Active Substance: LIDOCAINE
     Indication: PRODUCT USED FOR UNKNOWN INDICATION
     Dosage: 5 % (700 MG), ONCE DAILY
     Route: 062
     Dates: start: 20170802

REACTIONS (2)
  - Syncope [Recovered/Resolved]
  - Hallucination [Recovered/Resolved]

NARRATIVE: CASE EVENT DATE: 20170804
